FAERS Safety Report 4637485-1 (Version None)
Quarter: 2005Q1

REPORT INFORMATION
  Report Type: 
  Country: None (occurrence: None)
  Receive Date: 20050325
  Receipt Date: 20041208
  Transmission Date: 20050727
  Serious: No
  Sender: FDA-Public Use
  Company Number: USA041285579

PATIENT
  Age: 58 Year
  Sex: Female

DRUGS (4)
  1. FORTEO [Suspect]
     Indication: OSTEOPOROSIS
     Dates: start: 20041202
  2. CALCIUM GLUCONATE [Concomitant]
  3. IBUPROFEN [Concomitant]
  4. VITAMINS/LIQUID VITAMINS [Concomitant]

REACTIONS (8)
  - CONSTIPATION [None]
  - DIZZINESS [None]
  - DYSPEPSIA [None]
  - FAECES HARD [None]
  - HYPERSOMNIA [None]
  - MUSCLE SPASMS [None]
  - NAUSEA [None]
  - STRESS [None]
